FAERS Safety Report 4614696-2 (Version None)
Quarter: 2005Q1

REPORT INFORMATION
  Report Type: 
  Country: None (occurrence: None)
  Receive Date: 20050322
  Receipt Date: 20050309
  Transmission Date: 20050727
  Serious: Yes (Life-Threatening, Other)
  Sender: FDA-Public Use
  Company Number: GB-JNJFOC-20050302408

PATIENT
  Age: 72 Year
  Sex: Female
  Weight: 60 kg

DRUGS (7)
  1. REMICADE [Suspect]
     Indication: RHEUMATOID ARTHRITIS
     Route: 042
  2. METHOTREXATE [Concomitant]
     Indication: RHEUMATOID ARTHRITIS
     Route: 049
  3. FOLIC ACID [Concomitant]
     Indication: RHEUMATOID ARTHRITIS
     Route: 049
  4. INDOCIN [Concomitant]
     Indication: RHEUMATOID ARTHRITIS
     Route: 049
  5. CO-PROXAMOL [Concomitant]
     Route: 049
  6. CO-PROXAMOL [Concomitant]
     Indication: RHEUMATOID ARTHRITIS
     Dosage: FREQUENCY -TAKEN AS NEEDED
     Route: 049
  7. CIMETIDINE [Concomitant]
     Dosage: TAKEN AS NEEDED
     Route: 049

REACTIONS (2)
  - ADENOCARCINOMA [None]
  - PLEURAL EFFUSION [None]
